FAERS Safety Report 8762970 (Version 3)
Quarter: 2012Q4

REPORT INFORMATION
  Report Type: Spontaneous
  Country: US (occurrence: None)
  Receive Date: 20120824
  Receipt Date: 20121121
  Transmission Date: 20130627
  Serious: Yes (Hospitalization)
  Sender: FDA-Public Use
  Company Number: US-009232

PATIENT
  Age: 67 Year
  Sex: Male

DRUGS (10)
  1. DEGARELIX [Suspect]
     Indication: PROSTATE CANCER
     Route: 058
     Dates: start: 20120730
  2. ASPIRIN [Concomitant]
  3. ATORVASTATIN [Concomitant]
  4. CLOPIDOGREL [Concomitant]
  5. HYDROCHLOROTHIAZIDE [Concomitant]
  6. LEVOTHYROXINE [Concomitant]
  7. LOSARTAN [Concomitant]
  8. METOPROLOL TARTRATE [Concomitant]
  9. NAPROXEN SODIUM [Concomitant]
  10. NITROGLYCERINE [Concomitant]

REACTIONS (18)
  - Injection site necrosis [None]
  - Injection site inflammation [None]
  - Injection site erythema [None]
  - Alopecia [None]
  - Hot flush [None]
  - Prostatic specific antigen increased [None]
  - Incontinence [None]
  - Fatigue [None]
  - Dizziness [None]
  - Sleep disorder [None]
  - Injection site discolouration [None]
  - Injection site rash [None]
  - Wound [None]
  - Blood pressure systolic increased [None]
  - Heart rate decreased [None]
  - Body temperature decreased [None]
  - Pain [None]
  - Haemorrhagic anaemia [None]
